FAERS Safety Report 9510526 (Version 1)
Quarter: 2013Q3

REPORT INFORMATION
  Report Type: Spontaneous
  Country: TR (occurrence: TR)
  Receive Date: 20130909
  Receipt Date: 20130909
  Transmission Date: 20140515
  Serious: Yes (Other)
  Sender: FDA-Public Use
  Company Number: TR-TAKEDA-2013TJP000027

PATIENT
  Sex: 0

DRUGS (1)
  1. LANSOPRAZOLE [Suspect]

REACTIONS (3)
  - Angioedema [Unknown]
  - Dyspnoea [Unknown]
  - Urticaria [Unknown]
